FAERS Safety Report 7019311-9 (Version None)
Quarter: 2010Q3

REPORT INFORMATION
  Report Type: 
  Country: None (occurrence: None)
  Receive Date: 20100922
  Receipt Date: 20100913
  Transmission Date: 20110219
  Serious: Yes (Life-Threatening, Hospitalization)
  Sender: FDA-Public Use
  Company Number: 2010MA002595

PATIENT
  Age: 79 Year
  Sex: Male

DRUGS (1)
  1. VERAPAMIL HCL [Suspect]
     Dosage: 7.2 G; X1; PO
     Route: 048

REACTIONS (13)
  - ASPIRATION [None]
  - BRADYCARDIA [None]
  - COMA [None]
  - HYPOTENSION [None]
  - LOSS OF CONSCIOUSNESS [None]
  - OLIGURIA [None]
  - OVERDOSE [None]
  - POISONING [None]
  - SCHIZOPHRENIA [None]
  - SUICIDAL IDEATION [None]
  - SUICIDE ATTEMPT [None]
  - TACHYCARDIA [None]
  - VOMITING [None]
